FAERS Safety Report 8531528 (Version 4)
Quarter: 2012Q4

REPORT INFORMATION
  Report Type: 
  Country: JP (occurrence: JP)
  Receive Date: 20120426
  Receipt Date: 20120927
  Transmission Date: 20130627
  Serious: Yes (Other)
  Sender: FDA-Public Use
  Company Number: JP-SANOFI-AVENTIS-2012SA028706

PATIENT
  Age: 70 Year
  Sex: Male

DRUGS (2)
  1. RILUTEK [Suspect]
     Indication: AMYOTROPHIC LATERAL SCLEROSIS
     Dosage: taken to:around 22 mar 12
     Route: 048
     Dates: start: 20090618, end: 20120322
  2. GABAPENTIN [Suspect]
     Indication: PAIN
     Route: 065
     Dates: start: 20110314, end: 20110928

REACTIONS (2)
  - Sulphaemoglobin increased [Recovered/Resolved]
  - Pallor [Recovered/Resolved]
